FAERS Safety Report 6449056-5 (Version None)
Quarter: 2009Q4

REPORT INFORMATION
  Report Type: 
  Country: None (occurrence: None)
  Receive Date: 20091119
  Receipt Date: 20091119
  Transmission Date: 20100525
  Serious: No
  Sender: FDA-Public Use
  Company Number: None

PATIENT
  Sex: Male

DRUGS (3)
  1. EPITOL [Suspect]
     Indication: CONVULSION
     Dosage: 600 MG AM 400 MG PM BID PO
     Route: 048
  2. EPITOL [Suspect]
     Indication: EPILEPSY
     Dosage: 600 MG AM 400 MG PM BID PO
     Route: 048
  3. DEPAKOTE [Concomitant]

REACTIONS (1)
  - CONVULSION [None]
